FAERS Safety Report 6871538-2 (Version None)
Quarter: 2010Q3

REPORT INFORMATION
  Report Type: 
  Country: None (occurrence: None)
  Receive Date: 20100723
  Receipt Date: 20100715
  Transmission Date: 20110219
  Serious: Yes (Other)
  Sender: FDA-Public Use
  Company Number: PHHO2010US10735

PATIENT
  Sex: Male

DRUGS (5)
  1. ZOMETA [Suspect]
     Indication: METASTASES TO BONE
     Dosage: UNK
     Dates: start: 20090201
  2. BEVACIZUMAB [Suspect]
     Indication: PROSTATE CANCER
  3. REVLIMID [Concomitant]
     Indication: PROSTATE CANCER
  4. DOCETAXEL [Concomitant]
     Indication: PROSTATE CANCER
  5. PREDNISONE [Concomitant]
     Indication: PROSTATE CANCER

REACTIONS (2)
  - ORAL DISCOMFORT [None]
  - OSTEONECROSIS OF JAW [None]
